FAERS Safety Report 25907512 (Version 1)
Quarter: 2025Q4

REPORT INFORMATION
  Report Type: Spontaneous
  Country: CN (occurrence: CN)
  Receive Date: 20251010
  Receipt Date: 20251010
  Transmission Date: 20260118
  Serious: Yes (Other)
  Sender: RANBAXY
  Company Number: CN-SUN PHARMACEUTICAL INDUSTRIES INC-2025R1-529831

PATIENT
  Age: 90 Year
  Sex: Male

DRUGS (2)
  1. ODOMZO [Suspect]
     Active Substance: SONIDEGIB
     Indication: Basal cell carcinoma
     Dosage: 200 MILLIGRAM, QD
     Route: 048
     Dates: start: 20250730, end: 20250925
  2. ODOMZO [Suspect]
     Active Substance: SONIDEGIB
     Dosage: 200 MILLIGRAM, QOD
     Route: 048
     Dates: start: 20250926

REACTIONS (4)
  - Renal impairment [Unknown]
  - Gamma-glutamyltransferase increased [Unknown]
  - Bilirubin conjugated increased [Unknown]
  - Streptococcus test positive [Unknown]

NARRATIVE: CASE EVENT DATE: 20250829
